FAERS Safety Report 8284688-3 (Version None)
Quarter: 2012Q2

REPORT INFORMATION
  Report Type: 
  Country: None (occurrence: None)
  Receive Date: 20120413
  Receipt Date: 20110316
  Transmission Date: 20120825
  Serious: No
  Sender: FDA-Public Use
  Company Number: US-ASTRAZENECA-2011SE14778

PATIENT
  Age: 55 Year
  Sex: Male
  Weight: 108.9 kg

DRUGS (3)
  1. CRESTOR [Suspect]
     Indication: HYPERCHOLESTEROLAEMIA
     Route: 048
     Dates: start: 20110201, end: 20110201
  2. CRESTOR [Suspect]
     Route: 048
     Dates: start: 20110301
  3. NEXIUM [Suspect]
     Indication: DYSPEPSIA
     Route: 048

REACTIONS (10)
  - DYSPNOEA [None]
  - HYPERSOMNIA [None]
  - FLATULENCE [None]
  - BLOOD GLUCOSE INCREASED [None]
  - POLLAKIURIA [None]
  - DYSPEPSIA [None]
  - IMPAIRED DRIVING ABILITY [None]
  - CONSTIPATION [None]
  - LIMB DISCOMFORT [None]
  - DRUG INEFFECTIVE [None]
